FAERS Safety Report 6902033-X (Version None)
Quarter: 2010Q3

REPORT INFORMATION
  Report Type: 
  Country: None (occurrence: None)
  Receive Date: 20100803
  Receipt Date: 20080409
  Transmission Date: 20110219
  Serious: No
  Sender: FDA-Public Use
  Company Number: US-PFIZER INC-2008005273

PATIENT
  Sex: Female
  Weight: 75.3 kg

DRUGS (14)
  1. LYRICA [Suspect]
     Indication: FIBROMYALGIA
     Route: 048
     Dates: start: 20070801, end: 20071101
  2. HUMIRA [Interacting]
     Indication: RHEUMATOID ARTHRITIS
     Dosage: NA EVERY 2 WEEKS
  3. VITAMIN TAB [Concomitant]
  4. SYNTHROID [Concomitant]
  5. PREDNISONE [Concomitant]
  6. PROTONIX [Concomitant]
  7. FOLIC ACID [Concomitant]
  8. CELEXA [Concomitant]
  9. HYDROCHLOROTHIAZIDE [Concomitant]
  10. METHOTREXATE [Concomitant]
  11. TYLENOL [Concomitant]
  12. ULTRAM [Concomitant]
  13. CALCIUM [Concomitant]
  14. MORPHINE [Concomitant]

REACTIONS (10)
  - ABDOMINAL DISCOMFORT [None]
  - BLOOD PRESSURE INCREASED [None]
  - DIZZINESS [None]
  - DRUG DEPENDENCE [None]
  - DRUG INTERACTION [None]
  - FEELING ABNORMAL [None]
  - IRRITABILITY [None]
  - SOMNOLENCE [None]
  - WEIGHT INCREASED [None]
  - WITHDRAWAL SYNDROME [None]
